FAERS Safety Report 17930090 (Version 6)
Quarter: 2021Q2

REPORT INFORMATION
  Report Type: Report from Study
  Country: US (occurrence: US)
  Receive Date: 20200623
  Receipt Date: 20210525
  Transmission Date: 20210717
  Serious: Yes (Death, Hospitalization, Other)
  Sender: FDA-Public Use
  Company Number: NVSC2020US149511

PATIENT
  Age: 65 Year
  Sex: Female

DRUGS (2)
  1. ZYKADIA [Suspect]
     Active Substance: CERITINIB
     Indication: NON-SMALL CELL LUNG CANCER
     Dosage: UNK
     Route: 042
     Dates: end: 20200520
  2. DOCETAXEL. [Suspect]
     Active Substance: DOCETAXEL
     Indication: NON-SMALL CELL LUNG CANCER
     Dosage: UNK
     Route: 042
     Dates: start: 20200514

REACTIONS (19)
  - Failure to thrive [Recovering/Resolving]
  - Mucosal inflammation [Recovering/Resolving]
  - Dehydration [Unknown]
  - Pneumonia [Fatal]
  - Dyspnoea [Fatal]
  - Atrial fibrillation [Unknown]
  - Nausea [Recovering/Resolving]
  - Neutropenia [Recovering/Resolving]
  - Dehydration [Recovered/Resolved]
  - Vomiting [Recovering/Resolving]
  - Respiratory failure [Fatal]
  - Fatigue [Recovering/Resolving]
  - Weight decreased [Recovering/Resolving]
  - Decreased appetite [Unknown]
  - Wheezing [Fatal]
  - Diarrhoea [Recovering/Resolving]
  - Hypotension [Unknown]
  - Pleural effusion [Fatal]
  - Localised oedema [Fatal]

NARRATIVE: CASE EVENT DATE: 20200521
